FAERS Safety Report 6066588-2 (Version None)
Quarter: 2009Q1

REPORT INFORMATION
  Report Type: 
  Country: None (occurrence: None)
  Receive Date: 20090205
  Receipt Date: 20090202
  Transmission Date: 20090719
  Serious: Yes (Hospitalization)
  Sender: FDA-Public Use
  Company Number: B0527363A

PATIENT
  Age: 81 Year
  Sex: Female

DRUGS (13)
  1. SERETIDE [Suspect]
     Indication: ASTHMA
     Dosage: 2PUFF TWICE PER DAY
     Route: 055
  2. PERINDOPRIL ERBUMINE [Suspect]
     Indication: DRUG USE FOR UNKNOWN INDICATION
     Route: 065
  3. SALBUTAMOL SULPHATE [Suspect]
     Indication: ASTHMA
     Dosage: 100MCG AS REQUIRED
     Route: 055
  4. QUININE [Suspect]
     Indication: DRUG USE FOR UNKNOWN INDICATION
     Route: 065
  5. FERROUS SULPHATE [Suspect]
     Indication: DRUG USE FOR UNKNOWN INDICATION
     Route: 065
  6. ALENDRONIC ACID [Suspect]
     Indication: DRUG USE FOR UNKNOWN INDICATION
     Route: 065
  7. BENDROFLUMETHIAZIDE [Suspect]
     Indication: DRUG USE FOR UNKNOWN INDICATION
     Route: 065
  8. ASPIRIN [Concomitant]
     Route: 065
  9. IRON TABLETS [Concomitant]
     Route: 065
  10. SIMVASTATIN [Concomitant]
     Route: 065
  11. AMLODIPINE [Concomitant]
     Route: 065
  12. ADCAL [Concomitant]
     Route: 065
  13. RISEDRONATE SODIUM [Concomitant]
     Route: 065

REACTIONS (6)
  - CONTUSION [None]
  - COUGH [None]
  - FALL [None]
  - HUMERUS FRACTURE [None]
  - LOWER RESPIRATORY TRACT INFECTION [None]
  - PRODUCTIVE COUGH [None]
